FAERS Safety Report 14742255 (Version 1)
Quarter: 2018Q2

REPORT INFORMATION
  Report Type: Spontaneous
  Country: US (occurrence: US)
  Receive Date: 20180405
  Receipt Date: 20180405
  Transmission Date: 20180711
  Serious: No
  Sender: FDA-Public Use
  Company Number: None

PATIENT
  Age: 44 Year
  Sex: Male
  Weight: 81.6 kg

DRUGS (4)
  1. LEUCOVORIN CALCIUM. [Suspect]
     Active Substance: LEUCOVORIN CALCIUM
     Dates: end: 20171122
  2. 5-FLUOROURACIL (5-FU) [Suspect]
     Active Substance: FLUOROURACIL
     Dates: end: 20171122
  3. XELODA [Suspect]
     Active Substance: CAPECITABINE
     Dates: end: 20180215
  4. ELOXATIN [Suspect]
     Active Substance: OXALIPLATIN
     Dates: end: 20171122

REACTIONS (2)
  - Lymphocyte count decreased [None]
  - White blood cell count decreased [None]

NARRATIVE: CASE EVENT DATE: 20180215
